FAERS Safety Report 25708215 (Version 1)
Quarter: 2025Q3

REPORT INFORMATION
  Report Type: Report from Study
  Country: KR (occurrence: KR)
  Receive Date: 20250821
  Receipt Date: 20250821
  Transmission Date: 20251021
  Serious: Yes (Death, Hospitalization, Other)
  Sender: ABBVIE
  Company Number: KR-ABBVIE-6421744

PATIENT
  Age: 77 Year
  Sex: Female
  Weight: 66 kg

DRUGS (49)
  1. VENCLEXTA [Suspect]
     Active Substance: VENETOCLAX
     Indication: Acute myeloid leukaemia
     Route: 048
     Dates: start: 20250301, end: 20250325
  2. VENCLEXTA [Suspect]
     Active Substance: VENETOCLAX
     Indication: Acute myeloid leukaemia
     Route: 048
     Dates: start: 20250227, end: 20250227
  3. VENCLEXTA [Suspect]
     Active Substance: VENETOCLAX
     Indication: Acute myeloid leukaemia
     Route: 048
     Dates: start: 20250226, end: 20250226
  4. VENCLEXTA [Suspect]
     Active Substance: VENETOCLAX
     Indication: Acute myeloid leukaemia
     Route: 048
     Dates: start: 20250228, end: 20250228
  5. VANCOMYCIN [Concomitant]
     Active Substance: VANCOMYCIN
     Indication: Febrile neutropenia
     Dosage: UNIT DOSE: 1 VIAL 500 MG
     Route: 042
     Dates: start: 20250428, end: 20250508
  6. Newcal-D [Concomitant]
     Indication: Nutritional supplementation
     Route: 048
     Dates: start: 20250331, end: 20250408
  7. BC CODEIN PHOSPHATE [Concomitant]
     Indication: Pneumonia
     Route: 048
     Dates: start: 20250416, end: 20250515
  8. MUCOPECT [Concomitant]
     Indication: Pneumonia
     Route: 048
     Dates: start: 20250407, end: 20250417
  9. SMOFLIPID [Concomitant]
     Active Substance: FISH OIL\MEDIUM-CHAIN TRIGLYCERIDES\OLIVE OIL\SOYBEAN OIL
     Indication: Nutritional supplementation
     Route: 042
     Dates: start: 20250411, end: 20250519
  10. SMOFLIPID [Concomitant]
     Active Substance: FISH OIL\MEDIUM-CHAIN TRIGLYCERIDES\OLIVE OIL\SOYBEAN OIL
     Indication: Nutritional supplementation
     Route: 042
     Dates: start: 20250304, end: 20250327
  11. MECKOOL [Concomitant]
     Indication: Nausea
     Route: 042
     Dates: start: 20250304, end: 20250328
  12. POTASSIUM CHLORIDE [Concomitant]
     Active Substance: POTASSIUM CHLORIDE
     Indication: Hypokalaemia
     Route: 042
     Dates: start: 20250412, end: 20250519
  13. POTASSIUM CHLORIDE [Concomitant]
     Active Substance: POTASSIUM CHLORIDE
     Indication: Hypokalaemia
     Dosage: INJ 20ML
     Route: 042
     Dates: start: 20250306, end: 20250308
  14. LEVODROPROPIZINE [Concomitant]
     Active Substance: LEVODROPROPIZINE
     Indication: Pneumonia
     Route: 048
     Dates: start: 20250407, end: 20250417
  15. ZOYLEX [Concomitant]
     Indication: Infection prophylaxis
     Route: 048
     Dates: start: 20250226, end: 20250514
  16. ONDANT [Concomitant]
     Indication: Nausea
     Dosage: INJ 8MG
     Route: 042
     Dates: start: 20250304, end: 20250304
  17. POSPENEM [Concomitant]
     Indication: Febrile neutropenia
     Dosage: UNIT DOSE: 1 VIAL INJ 1G
     Route: 042
     Dates: start: 20250509, end: 20250519
  18. POSPENEM [Concomitant]
     Indication: Febrile neutropenia
     Route: 042
     Dates: start: 20250413, end: 20250508
  19. M-COBAL [Concomitant]
     Indication: Neurotoxicity
     Dosage: CAP 500MCG
     Route: 048
     Dates: start: 20250226, end: 20250401
  20. VITAMIN C YUHAN [Concomitant]
     Indication: Product used for unknown indication
     Route: 048
     Dates: start: 20250226, end: 20250401
  21. FREAMINE III NOS [Concomitant]
     Active Substance: AMINO ACIDS
     Indication: Nutritional supplementation
     Route: 042
     Dates: start: 20250305, end: 20250328
  22. FREAMINE III NOS [Concomitant]
     Active Substance: AMINO ACIDS
     Indication: Nutritional supplementation
     Route: 042
     Dates: start: 20250412, end: 20250518
  23. TAZOPERAN [Concomitant]
     Indication: Febrile neutropenia
     Dosage: UNIT DOSE: 1VIAL  INJ 4.5G
     Route: 042
     Dates: start: 20250304, end: 20250312
  24. TAZOPERAN [Concomitant]
     Indication: Febrile neutropenia
     Dosage: UNIT DOSE: 1VIAL  INJ 4.5G
     Route: 042
     Dates: start: 20250409, end: 20250410
  25. K-CONTIN CONTINUS [Concomitant]
     Indication: Hypokalaemia
     Route: 048
     Dates: start: 20250427, end: 20250512
  26. MAXIPIME [Concomitant]
     Active Substance: CEFEPIME HYDROCHLORIDE
     Indication: Febrile neutropenia
     Dosage: UNIT DOSE: 2 VIAL  INJ 1G
     Route: 042
     Dates: start: 20250410, end: 20250412
  27. IMMUN ALPHA [Concomitant]
     Indication: Infection
     Dosage: UNIT DOSE: 1VIAL GC WELLBEING
     Route: 058
     Dates: start: 20250226, end: 20250226
  28. NOXAFIL [Concomitant]
     Active Substance: POSACONAZOLE
     Indication: Infection prophylaxis
     Dosage: GASTRO RESISTANT TAB 100MG
     Route: 048
     Dates: start: 20250226, end: 20250401
  29. FOLIC ACID SINIL [Concomitant]
     Indication: Nutritional supplementation
     Dosage: TAB 1MG
     Route: 048
     Dates: start: 20250226, end: 20250401
  30. LEVOFLOXACIN [Concomitant]
     Active Substance: LEVOFLOXACIN
     Indication: Febrile neutropenia
     Dosage: UNIT DOSE: 1VIAL  INJ 750MG/150ML
     Route: 042
     Dates: start: 20250409, end: 20250413
  31. MEGACE [Concomitant]
     Active Substance: MEGESTROL ACETATE
     Indication: Decreased appetite
     Dosage: ORAL SUSP 10ML
     Route: 048
     Dates: start: 20250307, end: 20250401
  32. AMBISOME [Concomitant]
     Active Substance: AMPHOTERICIN B
     Indication: Febrile neutropenia
     Route: 042
     Dates: start: 20250410, end: 20250519
  33. LEVOFLOXACIN [Concomitant]
     Active Substance: LEVOFLOXACIN
     Indication: Infection prophylaxis
     Dosage: TAB 500MG
     Route: 048
     Dates: start: 20250226, end: 20250409
  34. NORVASC [Concomitant]
     Active Substance: AMLODIPINE BESYLATE
     Indication: Hypertension
     Dosage: TAB 5MG
     Route: 048
     Dates: start: 20241230, end: 20250514
  35. PYRIDOXINE HYDROCHLORIDE [Concomitant]
     Active Substance: PYRIDOXINE HYDROCHLORIDE
     Indication: Prophylaxis
     Route: 048
     Dates: start: 20250226, end: 20250401
  36. DEBIKIN [Concomitant]
     Indication: Acute myeloid leukaemia
     Route: 042
     Dates: start: 20250226, end: 20250302
  37. ACETPHEN PREMIX [Concomitant]
     Indication: Febrile neutropenia
     Route: 042
     Dates: start: 20250409, end: 20250409
  38. LASIX [Concomitant]
     Active Substance: FUROSEMIDE
     Indication: Oedema
     Route: 042
     Dates: start: 20250410, end: 20250519
  39. BUTYLSCOPOLAMINE BROMIDE [Concomitant]
     Active Substance: BUTYLSCOPOLAMINE BROMIDE
     Indication: Nausea
     Route: 048
     Dates: start: 20250304, end: 20250401
  40. VANCOMYCIN [Concomitant]
     Active Substance: VANCOMYCIN
     Indication: Febrile neutropenia
     Dosage: UNIT DOSE: 0.6VIAL 1 MG
     Route: 042
     Dates: start: 20250422, end: 20250428
  41. VANCOMYCIN [Concomitant]
     Active Substance: VANCOMYCIN
     Indication: Febrile neutropenia
     Dosage: UNIT DOSE: 0.75VIAL 1 MG
     Route: 042
     Dates: start: 20250418, end: 20250421
  42. VANCOMYCIN [Concomitant]
     Active Substance: VANCOMYCIN
     Indication: Febrile neutropenia
     Dosage: UNIT DOSE: 1 VIAL 1 MG
     Route: 042
     Dates: start: 20250415, end: 20250417
  43. LENOGRASTIM [Concomitant]
     Active Substance: LENOGRASTIM
     Indication: Febrile neutropenia
     Dosage: UNIT DOSE: 1VIAL INJ 250MCG
     Route: 042
     Dates: start: 20250409, end: 20250519
  44. LENOGRASTIM [Concomitant]
     Active Substance: LENOGRASTIM
     Indication: Febrile neutropenia
     Route: 042
     Dates: start: 20250304, end: 20250407
  45. SCD MAGNESIUM OXIDE [Concomitant]
     Indication: Constipation
     Route: 048
     Dates: start: 20250324, end: 20250414
  46. AMBROXOL HCI MYUNGMOON [Concomitant]
     Indication: Pneumonia
     Route: 042
     Dates: start: 20250410, end: 20250519
  47. PROPACETAMOL HYDROCHLORIDE [Concomitant]
     Active Substance: PROPACETAMOL HYDROCHLORIDE
     Indication: Febrile neutropenia
     Dosage: UNIT DOSE: 1VIAL
     Route: 042
     Dates: start: 20250304, end: 20250304
  48. PROPACETAMOL HYDROCHLORIDE [Concomitant]
     Active Substance: PROPACETAMOL HYDROCHLORIDE
     Indication: Febrile neutropenia
     Route: 042
     Dates: start: 20250410, end: 20250519
  49. CODAEWON S [Concomitant]
     Indication: Pneumonia
     Route: 048
     Dates: start: 20250414, end: 20250515

REACTIONS (2)
  - Pneumonia [Fatal]
  - Febrile neutropenia [Fatal]

NARRATIVE: CASE EVENT DATE: 20250407
